FAERS Safety Report 20850609 (Version 1)
Quarter: 2022Q2

REPORT INFORMATION
  Report Type: Spontaneous
  Country: US (occurrence: US)
  Receive Date: 20220519
  Receipt Date: 20220519
  Transmission Date: 20220720
  Serious: No
  Sender: FDA-Public Use
  Company Number: US-PFIZER INC-202200709059

PATIENT
  Age: 42 Year
  Sex: Female

DRUGS (1)
  1. IBRANCE [Suspect]
     Active Substance: PALBOCICLIB
     Dosage: 100 MG, CYCLIC(TAKE 1 CAPSULE DAILY FOR 21 DAYS , THEN 7 DAYS OFF )

REACTIONS (6)
  - Oedema peripheral [Unknown]
  - Blood pressure increased [Unknown]
  - Chest discomfort [Unknown]
  - Emotional distress [Unknown]
  - Weight increased [Unknown]
  - Neutrophil count decreased [Unknown]
